FAERS Safety Report 24944279 (Version 1)
Quarter: 2025Q1

REPORT INFORMATION
  Report Type: Report from Study
  Country: US (occurrence: US)
  Receive Date: 20250208
  Receipt Date: 20250208
  Transmission Date: 20250409
  Serious: Yes (Hospitalization)
  Sender: ABBVIE
  Company Number: US-ABBVIE-6117902

PATIENT
  Age: 53 Year
  Sex: Female

DRUGS (1)
  1. SKYRIZI [Suspect]
     Active Substance: RISANKIZUMAB-RZAA
     Indication: Product used for unknown indication
     Route: 058
     Dates: start: 20231107

REACTIONS (4)
  - Pneumonia escherichia [Unknown]
  - Immunodeficiency [Unknown]
  - White blood cell disorder [Unknown]
  - Influenza [Unknown]

NARRATIVE: CASE EVENT DATE: 20241201
